FAERS Safety Report 25053906 (Version 1)
Quarter: 2025Q1

REPORT INFORMATION
  Report Type: Spontaneous
  Country: US (occurrence: US)
  Receive Date: 20250307
  Receipt Date: 20250307
  Transmission Date: 20250409
  Serious: No
  Sender: SANOFI AVENTIS
  Company Number: US-SA-2025SA066688

PATIENT
  Age: 41 Year
  Sex: Male
  Weight: 67.27 kg

DRUGS (2)
  1. DUPIXENT [Suspect]
     Active Substance: DUPILUMAB
     Indication: Crohn^s disease
     Dates: start: 202501, end: 202501
  2. STELARA [Concomitant]
     Active Substance: USTEKINUMAB

REACTIONS (2)
  - Nasal congestion [Unknown]
  - Product use in unapproved indication [Unknown]

NARRATIVE: CASE EVENT DATE: 20250101
